FAERS Safety Report 6265011-2 (Version None)
Quarter: 2009Q3

REPORT INFORMATION
  Report Type: 
  Country: None (occurrence: None)
  Receive Date: 20090713
  Receipt Date: 20090706
  Transmission Date: 20100115
  Serious: Yes (Hospitalization)
  Sender: FDA-Public Use
  Company Number: US-JNJFOC-20090702485

PATIENT
  Sex: Female

DRUGS (4)
  1. TYLENOL W/ CODEINE [Suspect]
     Indication: ARTHRITIS
     Dosage: ONE TO TWO TABLETS 3 TO 4 TIMES
     Route: 048
  2. APRACLONIDINE [Concomitant]
     Indication: GLAUCOMA
     Route: 031
  3. CIPROFLOXACIN [Concomitant]
     Indication: GLAUCOMA
     Route: 031
  4. DIFLUCAN [Concomitant]
     Indication: GLAUCOMA
     Route: 031

REACTIONS (5)
  - BODY HEIGHT DECREASED [None]
  - CEREBROVASCULAR ACCIDENT [None]
  - FEELING ABNORMAL [None]
  - GASTRIC DISORDER [None]
  - HEMIPARESIS [None]
